FAERS Safety Report 10161417 (Version 1)
Quarter: 2014Q2

REPORT INFORMATION
  Report Type: Spontaneous
  Country: FR (occurrence: FR)
  Receive Date: 20140509
  Receipt Date: 20140509
  Transmission Date: 20141212
  Serious: Yes (Hospitalization)
  Sender: FDA-Public Use
  Company Number: 2014SP002590

PATIENT
  Age: 62 Year
  Sex: Male

DRUGS (8)
  1. FLUOROURACIL [Suspect]
     Indication: NEUROENDOCRINE TUMOUR
     Route: 042
     Dates: start: 20140324, end: 20140325
  2. FLUOROURACIL [Suspect]
     Indication: NEUROENDOCRINE TUMOUR
     Route: 042
     Dates: start: 20140210
  3. OXALIPLATIN [Suspect]
     Indication: NEUROENDOCRINE TUMOUR
     Route: 042
     Dates: start: 20140324, end: 20140324
  4. OXALIPLATIN [Suspect]
     Indication: NEUROENDOCRINE TUMOUR
     Route: 042
     Dates: start: 20140210
  5. CALCIUM FOLINATE [Concomitant]
     Dates: start: 20140210
  6. LEVOTHYROXINE SODIUM [Concomitant]
  7. METHYLPREDNISOLONE [Concomitant]
  8. ACETYLSALICYLATE LYSINE [Concomitant]

REACTIONS (2)
  - Cerebrovascular accident [Recovered/Resolved with Sequelae]
  - Nervous system disorder [Recovered/Resolved with Sequelae]
